FAERS Safety Report 6377040-9 (Version None)
Quarter: 2009Q3

REPORT INFORMATION
  Report Type: 
  Country: None (occurrence: None)
  Receive Date: 20090925
  Receipt Date: 20090921
  Transmission Date: 20100115
  Serious: Yes (Other)
  Sender: FDA-Public Use
  Company Number: US-WYE-H11093409

PATIENT
  Sex: Female

DRUGS (1)
  1. ROBITUSSIN COUGH LONG ACTING [Suspect]
     Indication: DRUG ABUSE
     Dosage: UNKNOWN
     Route: 048

REACTIONS (1)
  - DRUG ABUSE [None]
